FAERS Safety Report 5309368-5 (Version None)
Quarter: 2007Q2

REPORT INFORMATION
  Report Type: 
  Country: None (occurrence: None)
  Receive Date: 20070425
  Receipt Date: 20070425
  Transmission Date: 20071010
  Serious: Yes (Hospitalization)
  Sender: FDA-Public Use
  Company Number: None

PATIENT
  Sex: Female
  Weight: 77.5651 kg

DRUGS (17)
  1. AVASTIN [Suspect]
     Indication: NON-SMALL CELL LUNG CANCER
     Dosage: 1500MG Q3WKS IV
     Route: 042
     Dates: start: 20060414, end: 20061108
  2. TARCEVA [Concomitant]
  3. POTASSIUM ACETATE [Concomitant]
  4. M.V.I. [Concomitant]
  5. VIT D [Concomitant]
  6. ZOFRAN [Concomitant]
  7. ALOXI [Concomitant]
  8. DECADRON [Concomitant]
  9. OXYCODONE HCL [Concomitant]
  10. METFORMIN HCL [Concomitant]
  11. ALDACTONE [Concomitant]
  12. PHOSPHOROUS [Concomitant]
  13. OXYCONTIN [Concomitant]
  14. LEVOXYL [Concomitant]
  15. CELEXA [Concomitant]
  16. MAGNESIUM SULFATE [Concomitant]
  17. NAPROXEN [Concomitant]

REACTIONS (2)
  - DIARRHOEA [None]
  - INTESTINAL PERFORATION [None]
